FAERS Safety Report 10223068 (Version 1)
Quarter: 2014Q2

REPORT INFORMATION
  Report Type: Report from Study
  Country: US (occurrence: US)
  Receive Date: 20140607
  Receipt Date: 20140607
  Transmission Date: 20141212
  Serious: Yes (Hospitalization)
  Sender: FDA-Public Use
  Company Number: PHHY2014US067399

PATIENT
  Age: 62 Year
  Sex: Female

DRUGS (23)
  1. BASILIXIMAB [Suspect]
     Indication: RENAL TRANSPLANT
     Dosage: 20 MG, DAY 01
     Route: 042
     Dates: start: 20130616
  2. BASILIXIMAB [Suspect]
     Indication: IMMUNOSUPPRESSION
     Dosage: 20 MG, DAY 04
     Route: 042
     Dates: end: 20130620
  3. TACROLIMUS [Suspect]
     Indication: RENAL TRANSPLANT
     Dosage: 5 MG UID/QD (03 MG IN THE MORNING AND 02 MG IN THE EVENING)
     Route: 048
     Dates: start: 20130616
  4. TACROLIMUS [Suspect]
     Indication: IMMUNOSUPPRESSION
  5. MYCOPHENOLATE MOFETIL [Suspect]
     Indication: RENAL TRANSPLANT
     Dosage: 500 MG, BID
     Route: 048
     Dates: start: 20130616
  6. MYCOPHENOLATE MOFETIL [Suspect]
     Indication: IMMUNOSUPPRESSION
  7. THEOPHYLLINE [Concomitant]
     Dosage: UKN, MODIFIED RELEASE CAPSULE, HARD
  8. ADVAIR [Concomitant]
     Dosage: UNK UKN, UNK, INHALATION VAPOUR
  9. ASPIRIN [Concomitant]
     Dosage: UNK UKN, UNK
  10. BISOPROLOL [Concomitant]
     Dosage: UNK UKN, UNK
  11. MAGNESIUM CALCIUM [Concomitant]
     Dosage: UNK UKN, UNK
  12. CLONIDINE [Concomitant]
     Dosage: UNK UKN, UNK
  13. DORZOLAMIDE TIMOLOL [Concomitant]
     Dosage: UNK UKN, UNK
  14. ENALAPRIL [Concomitant]
     Dosage: UNK UKN, UNK
  15. FLUTICASONE [Concomitant]
     Dosage: UNK UKN, UNK
  16. LANTUS [Concomitant]
     Dosage: UNK UKN, UNK
  17. LEVOTHYROXINE [Concomitant]
     Dosage: UNK UKN, UNK
  18. LINOLENIC ACID [Concomitant]
     Dosage: UNK UKN, UNK
  19. OMEGA 3                            /01333901/ [Concomitant]
     Dosage: UNK UKN, UNK
  20. PILOCARPINE [Concomitant]
     Dosage: UNK UKN, UNK
  21. VALCYTE [Concomitant]
     Dosage: UNK UKN, UNK
  22. ZANTAC [Concomitant]
     Dosage: UNK UKN, UNK
  23. PREDNISONE [Concomitant]
     Dosage: UNK UKN, UNK

REACTIONS (6)
  - Blood glucose increased [Unknown]
  - Cellulitis [Recovered/Resolved]
  - Erythema [Recovering/Resolving]
  - Bacterial infection [Unknown]
  - Pyrexia [Recovered/Resolved]
  - Haemoglobin decreased [Unknown]
